FAERS Safety Report 13031810 (Version 1)
Quarter: 2016Q4

REPORT INFORMATION
  Report Type: Spontaneous
  Country: IE (occurrence: IE)
  Receive Date: 20161215
  Receipt Date: 20161215
  Transmission Date: 20170207
  Serious: Yes (Other)
  Sender: FDA-Public Use
  Company Number: IE-CELLTRION INC.-2016IE012986

PATIENT

DRUGS (3)
  1. THIOGUANINE [Concomitant]
     Active Substance: THIOGUANINE
  2. INFLECTRA [Suspect]
     Active Substance: INFLIXIMAB-DYYB
     Indication: COLITIS ULCERATIVE
     Dosage: 5 MG/KG, UNK
     Route: 041
  3. MESALAZINE [Concomitant]
     Active Substance: MESALAMINE

REACTIONS (1)
  - Alveolitis [Unknown]
